FAERS Safety Report 25634532 (Version 1)
Quarter: 2025Q3

REPORT INFORMATION
  Report Type: Report from Study
  Country: GB (occurrence: US)
  Receive Date: 20250801
  Receipt Date: 20250801
  Transmission Date: 20251021
  Serious: Yes (Hospitalization, Other)
  Sender: ALEXION PHARMACEUTICALS
  Company Number: GB-AstraZeneca-CH-00919805A

PATIENT
  Sex: Male

DRUGS (1)
  1. DANICOPAN [Suspect]
     Active Substance: DANICOPAN
     Indication: Paroxysmal nocturnal haemoglobinuria
     Dosage: 150 MILLIGRAM, TID

REACTIONS (4)
  - Haemolysis [Unknown]
  - Osteomyelitis [Unknown]
  - Fatigue [Not Recovered/Not Resolved]
  - Blood pressure decreased [Unknown]
